FAERS Safety Report 9683430 (Version 3)
Quarter: 2014Q1

REPORT INFORMATION
  Report Type: Report from Study
  Country: DE (occurrence: DE)
  Receive Date: 20131112
  Receipt Date: 20140208
  Transmission Date: 20141002
  Serious: Yes (Hospitalization, Other)
  Sender: FDA-Public Use
  Company Number: DE-ABBVIE-12P-062-0901213-00

PATIENT
  Age: 9 Year
  Sex: Male

DRUGS (10)
  1. HUMIRA 40 MG/ 0.8 ML VIAL KIT [Suspect]
     Indication: JUVENILE IDIOPATHIC ARTHRITIS
     Route: 058
     Dates: start: 20111202, end: 20120425
  2. HUMIRA 40 MG/ 0.8 ML VIAL KIT [Suspect]
     Dosage: RESTART
     Dates: start: 20131003
  3. MTX [Concomitant]
     Indication: PRODUCT USED FOR UNKNOWN INDICATION
  4. NAPROXEN [Concomitant]
     Indication: PRODUCT USED FOR UNKNOWN INDICATION
  5. ANTRA [Concomitant]
     Indication: PRODUCT USED FOR UNKNOWN INDICATION
  6. CALCIUM D3 [Concomitant]
     Indication: PRODUCT USED FOR UNKNOWN INDICATION
  7. COTRIUM [Concomitant]
     Indication: PRODUCT USED FOR UNKNOWN INDICATION
  8. DEKRISTOL [Concomitant]
     Indication: PRODUCT USED FOR UNKNOWN INDICATION
  9. HIZENTRA [Concomitant]
     Indication: PRODUCT USED FOR UNKNOWN INDICATION
  10. LODOTRA [Concomitant]
     Indication: PRODUCT USED FOR UNKNOWN INDICATION

REACTIONS (6)
  - Wheelchair user [Unknown]
  - Drug ineffective [Recovering/Resolving]
  - Juvenile idiopathic arthritis [Not Recovered/Not Resolved]
  - Joint effusion [Unknown]
  - Mobility decreased [Unknown]
  - Inflammatory marker increased [Unknown]
